FAERS Safety Report 6802749-X (Version None)
Quarter: 2010Q2

REPORT INFORMATION
  Report Type: 
  Country: None (occurrence: None)
  Receive Date: 20100628
  Receipt Date: 20100617
  Transmission Date: 20101027
  Serious: Yes (Hospitalization)
  Sender: FDA-Public Use
  Company Number: AT-ASTRAZENECA-2010SE28540

PATIENT
  Age: 28293 Day
  Sex: Female
  Weight: 80 kg

DRUGS (5)
  1. ARIMIDEX [Suspect]
     Indication: BREAST CANCER
     Route: 048
     Dates: start: 20041201, end: 20071101
  2. ARIMIDEX [Suspect]
     Route: 048
     Dates: start: 20071211
  3. ACEMIN [Concomitant]
     Indication: BLOOD PRESSURE MANAGEMENT
     Route: 048
  4. SELOKEN [Concomitant]
     Indication: CARDIOVASCULAR EVENT PROPHYLAXIS
     Route: 048
  5. LESCOL [Concomitant]
     Indication: HYPERLIPIDAEMIA
     Route: 048

REACTIONS (1)
  - PULMONARY EMBOLISM [None]
